FAERS Safety Report 7822190-0 (Version None)
Quarter: 2011Q4

REPORT INFORMATION
  Report Type: 
  Country: None (occurrence: None)
  Receive Date: 20111018
  Receipt Date: 20101124
  Transmission Date: 20120403
  Serious: No
  Sender: FDA-Public Use
  Company Number: US-ASTRAZENECA-2010SE53356

PATIENT
  Sex: Female

DRUGS (5)
  1. SYMBICORT [Suspect]
     Indication: CHRONIC OBSTRUCTIVE PULMONARY DISEASE
     Dosage: 160/4.5MCG WITH UNKNOWN FREQUENCY
     Route: 055
  2. RHINOCORT [Suspect]
     Route: 045
  3. NEXIUM [Suspect]
     Route: 048
  4. PREDNISONE [Concomitant]
  5. PULMICORT [Suspect]
     Route: 055

REACTIONS (6)
  - PNEUMONIA [None]
  - BRONCHITIS [None]
  - DYSPNOEA [None]
  - NON-CARDIAC CHEST PAIN [None]
  - NOCTURNAL DYSPNOEA [None]
  - MALAISE [None]
